FAERS Safety Report 5742190-4 (Version None)
Quarter: 2008Q2

REPORT INFORMATION
  Report Type: 
  Country: None (occurrence: None)
  Receive Date: 20080514
  Receipt Date: 20080514
  Transmission Date: 20081010
  Serious: Yes (Other)
  Sender: FDA-Public Use
  Company Number: None

PATIENT
  Age: 73 Year
  Sex: Male

DRUGS (1)
  1. DIGITEK 0.25MG AMIDE-BERTEK- [Suspect]
     Dosage: 0.25MG DAILY PO
     Route: 048

REACTIONS (3)
  - DIARRHOEA [None]
  - DIZZINESS POSTURAL [None]
  - VISUAL DISTURBANCE [None]
